FAERS Safety Report 16534012 (Version 1)
Quarter: 2019Q3

REPORT INFORMATION
  Report Type: Spontaneous
  Country: US (occurrence: US)
  Receive Date: 20190705
  Receipt Date: 20190705
  Transmission Date: 20191004
  Serious: Yes (Other)
  Sender: FDA-Public Use
  Company Number: US-BAYER-2019-125710

PATIENT
  Age: 61 Year
  Sex: Male

DRUGS (3)
  1. MIRALAX [Suspect]
     Active Substance: POLYETHYLENE GLYCOL 3350
     Dosage: TOOK 4TH OF A CUP IN WATER DOSE
     Route: 048
  2. EMERVEL VOLUME [Concomitant]
  3. XANAX [Concomitant]
     Active Substance: ALPRAZOLAM

REACTIONS (12)
  - Renal failure [Not Recovered/Not Resolved]
  - Vision blurred [None]
  - Dysphagia [None]
  - Dehydration [None]
  - Peripheral swelling [None]
  - Prescribed underdose [Not Recovered/Not Resolved]
  - Incorrect dose administered [None]
  - Frequent bowel movements [Not Recovered/Not Resolved]
  - Limb discomfort [None]
  - Incorrect product administration duration [None]
  - Heart rate increased [None]
  - Chest pain [None]
